FAERS Safety Report 21177775 (Version 8)
Quarter: 2022Q4

REPORT INFORMATION
  Report Type: Spontaneous
  Country: US (occurrence: US)
  Receive Date: 20220805
  Receipt Date: 20221121
  Transmission Date: 20230112
  Serious: No
  Sender: FDA-Public Use
  Company Number: US-PFIZER INC-PV202200035033

PATIENT
  Age: 79 Year
  Sex: Male

DRUGS (4)
  1. EUCRISA [Suspect]
     Active Substance: CRISABOROLE
     Indication: Rash
     Dosage: UNK, 2X/DAY AS NEEDED (PRN)X10D
     Route: 061
  2. EUCRISA [Suspect]
     Active Substance: CRISABOROLE
     Dosage: 1 APPLICATION 4X/DAY AS NEEDED
     Route: 061
  3. EUCRISA [Suspect]
     Active Substance: CRISABOROLE
     Dosage: APPLY 1 APPLICATION ON THE SKIN TWICE A DAY; TO NECK BID FOR 10 DAYS PRN RASH)
     Route: 061
  4. EUCRISA [Suspect]
     Active Substance: CRISABOROLE
     Dosage: 1 APPLICATION ON THE SKIN QID (4 TIMES A DAY) TO NECK AND CHEST FOR 10 DAYS PRN RASH)
     Route: 061

REACTIONS (3)
  - Hypersensitivity [Unknown]
  - Off label use [Unknown]
  - Off label use [Unknown]
